FAERS Safety Report 5295646-5 (Version None)
Quarter: 2007Q2

REPORT INFORMATION
  Report Type: 
  Country: None (occurrence: None)
  Receive Date: 20070410
  Receipt Date: 20070410
  Transmission Date: 20071010
  Serious: Yes (Death)
  Sender: FDA-Public Use
  Company Number: None

PATIENT
  Age: 70 Year
  Sex: Male
  Weight: 63.9572 kg

DRUGS (11)
  1. MOXIFLOXACIN HCL [Suspect]
     Indication: PNEUMONIA
     Dosage: 400 MG DAILY IV
     Route: 042
     Dates: start: 20070326, end: 20070328
  2. MOXIFLOXACIN HCL [Suspect]
     Dosage: 400 MG DAILY PO
     Route: 048
     Dates: start: 20070328, end: 20070403
  3. BACLOFEN [Concomitant]
  4. GALANTAMINE HYDROBROMIDE [Concomitant]
  5. CITALOPRAM HYDROBROMIDE [Concomitant]
  6. CLONAZEPAM [Concomitant]
  7. TRAMADOL HCL [Concomitant]
  8. TOLTERODINE [Concomitant]
  9. ENOXAPARIN SODIUM [Concomitant]
  10. VANCOMYCIN [Concomitant]
  11. RANITIDINE [Concomitant]

REACTIONS (3)
  - ASPIRATION [None]
  - BACTERIAL SEPSIS [None]
  - CLOSTRIDIUM COLITIS [None]
